FAERS Safety Report 11050636 (Version 4)
Quarter: 2016Q1

REPORT INFORMATION
  Report Type: Report from Study
  Country: DE (occurrence: DE)
  Receive Date: 20150421
  Receipt Date: 20160114
  Transmission Date: 20160525
  Serious: Yes (Hospitalization)
  Sender: FDA-Public Use
  Company Number: DE-ROCHE-1566301

PATIENT
  Age: 79 Year
  Sex: Female

DRUGS (15)
  1. BETA-ACETYLDIGOXIN [Concomitant]
     Active Substance: ACETYLDIGITOXIN
  2. SIMVASTATIN. [Concomitant]
     Active Substance: SIMVASTATIN
  3. TOCILIZUMAB [Suspect]
     Active Substance: TOCILIZUMAB
     Indication: RHEUMATOID ARTHRITIS
     Route: 058
  4. SERTRALINE [Concomitant]
     Active Substance: SERTRALINE HYDROCHLORIDE
  5. XARELTO [Concomitant]
     Active Substance: RIVAROXABAN
  6. L-THYROXIN [Concomitant]
     Active Substance: LEVOTHYROXINE SODIUM
  7. DECORTIN H [Concomitant]
     Active Substance: PREDNISOLONE
  8. RAMIPRIL. [Concomitant]
     Active Substance: RAMIPRIL
  9. AMLODIPIN [Concomitant]
     Active Substance: AMLODIPINE BESYLATE
  10. NOVODIGAL [Concomitant]
     Active Substance: .BETA.-ACETYLDIGOXIN
  11. SIOFOR [Concomitant]
     Active Substance: METFORMIN HYDROCHLORIDE
  12. PREDNISOLON [Concomitant]
     Active Substance: PREDNISOLONE
  13. HYDROCHLOROTHIAZIDE. [Concomitant]
     Active Substance: HYDROCHLOROTHIAZIDE
  14. NEPRESOL [Concomitant]
     Active Substance: DIHYDRALAZINE SULFATE
  15. DEKRISTOL [Concomitant]
     Active Substance: CHOLECALCIFEROL

REACTIONS (3)
  - Cerebral ischaemia [Recovered/Resolved]
  - Dehydration [Unknown]
  - Transient ischaemic attack [Recovered/Resolved]

NARRATIVE: CASE EVENT DATE: 20150205
